FAERS Safety Report 12777469 (Version 1)
Quarter: 2016Q3

REPORT INFORMATION
  Report Type: Spontaneous
  Country: US (occurrence: US)
  Receive Date: 20160924
  Receipt Date: 20160924
  Transmission Date: 20161109
  Serious: No
  Sender: FDA-Public Use
  Company Number: US-TEVA-611273USA

PATIENT
  Age: 60 Year
  Sex: Female
  Weight: 108.96 kg

DRUGS (1)
  1. CLONAZEPAM. [Suspect]
     Active Substance: CLONAZEPAM
     Indication: ANXIETY
     Dosage: 1.5 MILLIGRAM DAILY;
     Route: 048
     Dates: start: 20150815, end: 20151103

REACTIONS (3)
  - Renal function test abnormal [Unknown]
  - Vitamin B12 increased [Unknown]
  - White blood cell count decreased [Unknown]

NARRATIVE: CASE EVENT DATE: 201511
